FAERS Safety Report 5266028-7 (Version None)
Quarter: 2007Q1

REPORT INFORMATION
  Report Type: 
  Country: None (occurrence: None)
  Receive Date: 20070313
  Receipt Date: 20070313
  Transmission Date: 20070707
  Serious: Yes (Life-Threatening, Hospitalization)
  Sender: FDA-Public Use
  Company Number: None

PATIENT
  Age: 69 Year
  Sex: Female
  Weight: 107 kg

DRUGS (1)
  1. APROTININ [Suspect]
     Indication: HAEMORRHAGE CONTROL
     Dosage: IV
     Route: 042
     Dates: start: 20070205, end: 20070205

REACTIONS (3)
  - POST PROCEDURAL MYOCARDIAL INFARCTION [None]
  - URINE OUTPUT DECREASED [None]
  - VASCULAR GRAFT OCCLUSION [None]
